FAERS Safety Report 6206452-9 (Version None)
Quarter: 2009Q2

REPORT INFORMATION
  Report Type: 
  Country: None (occurrence: None)
  Receive Date: 20090528
  Receipt Date: 20090520
  Transmission Date: 20091009
  Serious: Yes (Hospitalization)
  Sender: FDA-Public Use
  Company Number: PHHO2008DE08262

PATIENT
  Sex: Male
  Weight: 59 kg

DRUGS (6)
  1. SANDIMMUNE [Suspect]
     Indication: HEART TRANSPLANT
     Dosage: 65 MG DAILY
     Route: 048
     Dates: start: 20080629
  2. NO TREATMENT RECEIVED NOMED [Suspect]
     Indication: HEART TRANSPLANT
  3. CELLCEPT [Suspect]
     Indication: HEART TRANSPLANT
     Dosage: 2500MG/DAILY
     Route: 042
     Dates: start: 20080603, end: 20080603
  4. CELLCEPT [Suspect]
     Dosage: 2000MG/BID
     Route: 042
     Dates: start: 20080604, end: 20080604
  5. CELLCEPT [Suspect]
     Dosage: 2 G DAILY
     Route: 048
     Dates: start: 20080618
  6. DECORTIN [Concomitant]
     Dosage: UNK
     Dates: start: 20080624

REACTIONS (7)
  - CANDIDIASIS [None]
  - FUNGAL INFECTION [None]
  - IMPAIRED HEALING [None]
  - INCISIONAL DRAINAGE [None]
  - MEDIASTINITIS [None]
  - PLEURAL EFFUSION [None]
  - THORACOTOMY [None]
